FAERS Safety Report 5663729-3 (Version None)
Quarter: 2008Q1

REPORT INFORMATION
  Report Type: 
  Country: None (occurrence: None)
  Receive Date: 20080311
  Receipt Date: 20080229
  Transmission Date: 20080703
  Serious: Yes (Other)
  Sender: FDA-Public Use
  Company Number: S08-USA-00847-01

PATIENT
  Age: 28 Year
  Sex: Male

DRUGS (1)
  1. LEXAPRO [Suspect]

REACTIONS (4)
  - HOMICIDE [None]
  - INDIFFERENCE [None]
  - SEXUAL ABUSE [None]
  - THINKING ABNORMAL [None]
